FAERS Safety Report 7542033-2 (Version None)
Quarter: 2011Q2

REPORT INFORMATION
  Report Type: 
  Country: None (occurrence: None)
  Receive Date: 20110613
  Receipt Date: 20110606
  Transmission Date: 20111010
  Serious: Yes (Other)
  Sender: FDA-Public Use
  Company Number: US-SANOFI-AVENTIS-2011SA035737

PATIENT
  Age: 84 Year
  Sex: Female

DRUGS (1)
  1. AMBIEN [Suspect]
     Route: 065
     Dates: end: 20090101

REACTIONS (4)
  - MACULAR DEGENERATION [None]
  - POOR QUALITY SLEEP [None]
  - GLAUCOMA [None]
  - DIZZINESS [None]
